FAERS Safety Report 5723504-8 (Version None)
Quarter: 2008Q2

REPORT INFORMATION
  Report Type: 
  Country: None (occurrence: None)
  Receive Date: 20080425
  Receipt Date: 20080411
  Transmission Date: 20081010
  Serious: Yes (Hospitalization)
  Sender: FDA-Public Use
  Company Number: 865#9#2008-00005

PATIENT
  Age: 77 Year
  Sex: Male

DRUGS (29)
  1. ROTIGOTINE (DOSE UNKNOWN), PATCH (SILICONE) (ROTIGOTINE) [Suspect]
     Indication: PARKINSON'S DISEASE
     Dosage: 4.5 MG/24H (4.5 MG/24H 1 IN 1 DAY(S) TRANSDERMAL : 36 MG/24H (36 MG/24H 1 IN 1 DAY(S)) TRANSDERMAL
     Route: 062
     Dates: start: 20070330, end: 20070510
  2. ROTIGOTINE (DOSE UNKNOWN), PATCH (SILICONE) (ROTIGOTINE) [Suspect]
     Indication: PARKINSON'S DISEASE
     Dosage: 4.5 MG/24H (4.5 MG/24H 1 IN 1 DAY(S) TRANSDERMAL : 36 MG/24H (36 MG/24H 1 IN 1 DAY(S)) TRANSDERMAL
     Route: 062
     Dates: start: 20080321, end: 20080404
  3. ROTIGOTINE (DOSE UNKNOWN), PATCH (SILICONE) (ROTIGOTINE) [Suspect]
     Indication: PARKINSON'S DISEASE
     Dosage: 4.5 MG/24H (4.5 MG/24H 1 IN 1 DAY(S) TRANSDERMAL : 36 MG/24H (36 MG/24H 1 IN 1 DAY(S)) TRANSDERMAL
     Route: 062
     Dates: start: 20070511
  4. LEVODOPA BENSERAZIDE HYDROCHLORIDE (BENSERAZIDE HYDROCHLORIDE, LEVODOP [Concomitant]
  5. BACLOFEN [Concomitant]
  6. BENZBROMARONE (BENZBROMARONE) [Concomitant]
  7. KETOPROFEN [Concomitant]
  8. PRAMIPEXOLE DIHYDROCHLORIDE (PRAMIPEXOLE DIHYDROCHLORIDE) [Concomitant]
  9. FLUBIPROFEN (FLURBIPROFEN) [Concomitant]
  10. SIMVASTATIN [Concomitant]
  11. REBAMIPIDE (REBAMIPIDE) [Concomitant]
  12. MAGNESIUM OXIDE (MAGNESIUM OXIDE) [Concomitant]
  13. ETHYL LOFLAZEPATE (ETHYL LOFLAZEPATE) [Concomitant]
  14. MECOBALAMIN (MECOBALAMIN) [Concomitant]
  15. BETAHISTINE MESILATE (BETAHISTINE MESILATE) [Concomitant]
  16. NAFTOPIDIL [Concomitant]
  17. BROTIZOLAM (BROTIZOLAM) [Concomitant]
  18. LANSOPRAZOLE [Concomitant]
  19. CEFCAPENE PIVOXIL HYDROCHLORIDE (CEFCAPENE PIVOXIL HYDROCHLORIDE) [Concomitant]
  20. LOXOPROFEN SODIUM (LOXOPROFEN SODIUM) [Concomitant]
  21. DEXTROMETHORPHAN HYDROBROMIDE (DEXTROMETHORPHAN HYDROBROMIDE) [Concomitant]
  22. LEVOFLOXACIN [Concomitant]
  23. CETRAXATE HYDROCHLORIDE (CETRAXATE HYDROCHLORIDE) [Concomitant]
  24. POLAPREZINC (POLAPREZINC) [Concomitant]
  25. PANCREAS EXTRACT (PANCREAS EXTRACT) [Concomitant]
  26. PIPSISSEWA EXTRACT-JAPANESE ASPEN EXTRACT COMBINED DRUG [Concomitant]
  27. CARBOCYSTEINE [Concomitant]
  28. BIFIDOBACTERIUM COMBINED DRUG [Concomitant]
  29. BEPOTASTINE BESILATE [Concomitant]

REACTIONS (3)
  - DECREASED APPETITE [None]
  - DEHYDRATION [None]
  - PYREXIA [None]
